FAERS Safety Report 14835532 (Version 1)
Quarter: 2018Q2

REPORT INFORMATION
  Report Type: Spontaneous
  Country: US (occurrence: US)
  Receive Date: 20180502
  Receipt Date: 20180502
  Transmission Date: 20180711
  Serious: Yes (Death)
  Sender: FDA-Public Use
  Company Number: US-ROCHE-2114974

PATIENT
  Sex: Female

DRUGS (11)
  1. HYDROCODONE BITARTRATE AND ACETAMINOPHEN [Concomitant]
     Active Substance: ACETAMINOPHEN\HYDROCODONE BITARTRATE
  2. VALPROIC ACID. [Concomitant]
     Active Substance: VALPROIC ACID
  3. DIVALPROEX [Concomitant]
     Active Substance: DIVALPROEX SODIUM
  4. AMLODIPINE [Concomitant]
     Active Substance: AMLODIPINE BESYLATE
  5. METOPROLOL. [Concomitant]
     Active Substance: METOPROLOL
  6. LEVOFLOXACIN. [Concomitant]
     Active Substance: LEVOFLOXACIN
  7. ZELBORAF [Suspect]
     Active Substance: VEMURAFENIB
     Indication: COLON CANCER
     Route: 048
     Dates: start: 20180323, end: 2018
  8. DOXYCYCLINE. [Concomitant]
     Active Substance: DOXYCYCLINE
  9. TRAMADOL. [Concomitant]
     Active Substance: TRAMADOL
  10. ONDANSETRON [Concomitant]
     Active Substance: ONDANSETRON
  11. MEGESTROL [Concomitant]
     Active Substance: MEGESTROL

REACTIONS (1)
  - Death [Fatal]
